FAERS Safety Report 6107451-8 (Version None)
Quarter: 2009Q1

REPORT INFORMATION
  Report Type: 
  Country: None (occurrence: None)
  Receive Date: 20090309
  Receipt Date: 20090304
  Transmission Date: 20090719
  Serious: Yes (Congenital Anomaly)
  Sender: FDA-Public Use
  Company Number: BE-ASTRAZENECA-2009AC00700

PATIENT
  Age: 0 Week

DRUGS (3)
  1. ZOLADEX [Suspect]
     Route: 064
  2. NOLVADEX [Suspect]
     Route: 064
  3. FEMARA [Concomitant]
     Route: 064

REACTIONS (3)
  - CEREBRAL HAEMORRHAGE [None]
  - CONGENITAL ANOMALY [None]
  - MATERNAL DRUGS AFFECTING FOETUS [None]
